FAERS Safety Report 23283827 (Version 1)
Quarter: 2023Q4

REPORT INFORMATION
  Report Type: Report from Study
  Country: EG (occurrence: EG)
  Receive Date: 20231211
  Receipt Date: 20231211
  Transmission Date: 20240110
  Serious: Yes (Disabling, Other)
  Sender: FDA-Public Use
  Company Number: EG-002147023-NVSC2023EG259884

PATIENT
  Sex: Female

DRUGS (7)
  1. GILENYA [Suspect]
     Active Substance: FINGOLIMOD HYDROCHLORIDE
     Indication: Multiple sclerosis
     Dosage: ONE CAPSULE ONCE DAILY FOR 2 WEEKS THEN EVERY OTHER DAY
     Route: 065
     Dates: start: 2021, end: 2022
  2. NEURONTIN [Concomitant]
     Active Substance: GABAPENTIN
     Indication: Supplementation therapy
     Dosage: 300 MG, QD
     Route: 065
     Dates: start: 2020
  3. OMEGA 3 [Concomitant]
     Active Substance: CAPSAICIN
     Indication: Supplementation therapy
     Dosage: 1 DOSAGE FORM, QD
     Route: 065
     Dates: start: 2020
  4. BENFOTIAMINE\CYANOCOBALAMIN\PYRIDOXINE HYDROCHLORIDE [Concomitant]
     Active Substance: BENFOTIAMINE\CYANOCOBALAMIN\PYRIDOXINE HYDROCHLORIDE
     Indication: Nervous system disorder
     Dosage: 1 DOSAGE FORM, QD
     Route: 065
     Dates: start: 2020
  5. MYOFEN [Concomitant]
     Indication: Muscle relaxant therapy
     Dosage: 1 DOSAGE FORM, QD
     Route: 048
     Dates: start: 2020
  6. VITAMIN D3 [Concomitant]
     Active Substance: CHOLECALCIFEROL
     Indication: Supplementation therapy
     Dosage: 1 DOSAGE FORM, QD
     Route: 065
     Dates: start: 2020
  7. SOLU-MEDROL [Concomitant]
     Active Substance: METHYLPREDNISOLONE SODIUM SUCCINATE
     Indication: Multiple sclerosis relapse
     Dosage: PRN, WHEN NEEDED
     Route: 065

REACTIONS (8)
  - Central nervous system lesion [Recovering/Resolving]
  - Bone lesion [Recovering/Resolving]
  - Optic nerve disorder [Not Recovered/Not Resolved]
  - Multiple sclerosis relapse [Recovering/Resolving]
  - Hepatitis viral [Unknown]
  - Liver function test increased [Unknown]
  - Drug ineffective [Unknown]
  - Off label use [Unknown]

NARRATIVE: CASE EVENT DATE: 20220101
